FAERS Safety Report 22889966 (Version 4)
Quarter: 2023Q4

REPORT INFORMATION
  Report Type: Report from Study
  Country: US (occurrence: US)
  Receive Date: 20230831
  Receipt Date: 20231106
  Transmission Date: 20240110
  Serious: Yes (Other)
  Sender: FDA-Public Use
  Company Number: US-002147023-NVSC2023US189254

PATIENT
  Sex: Female

DRUGS (2)
  1. KISQALI [Suspect]
     Active Substance: RIBOCICLIB
     Indication: Breast cancer
     Dosage: 600 MG, QD
     Route: 048
     Dates: start: 202308
  2. KISQALI [Suspect]
     Active Substance: RIBOCICLIB
     Dosage: 400 MG
     Route: 065

REACTIONS (6)
  - Neutropenia [Unknown]
  - Nausea [Recovering/Resolving]
  - Constipation [Recovered/Resolved]
  - Fatigue [Recovering/Resolving]
  - Neutrophil count decreased [Unknown]
  - Appetite disorder [Recovering/Resolving]
